FAERS Safety Report 13634833 (Version 1)
Quarter: 2017Q2

REPORT INFORMATION
  Report Type: Spontaneous
  Country: US (occurrence: US)
  Receive Date: 20170531
  Receipt Date: 20170531
  Transmission Date: 20170830
  Serious: No
  Sender: FDA-Public Use
  Company Number: US-ASTELLAS-1660714

PATIENT
  Age: 59 Year
  Sex: Female

DRUGS (1)
  1. TARCEVA [Suspect]
     Active Substance: ERLOTINIB HYDROCHLORIDE
     Indication: PRODUCT USED FOR UNKNOWN INDICATION
     Route: 048

REACTIONS (7)
  - Weight increased [Unknown]
  - Vomiting [Unknown]
  - Oedema [Unknown]
  - Asthma [Unknown]
  - Fluid retention [Unknown]
  - Rash [Unknown]
  - Dyspnoea [Unknown]

NARRATIVE: CASE EVENT DATE: 20151111
